FAERS Safety Report 9037588 (Version 1)
Quarter: 2013Q1

REPORT INFORMATION
  Report Type: Report from Study
  Country: US (occurrence: US)
  Receive Date: 20130129
  Receipt Date: 20130129
  Transmission Date: 20140127
  Serious: No
  Sender: FDA-Public Use
  Company Number: US-ABBOTT-12P-163-0895781-00

PATIENT
  Age: 72 Year
  Sex: Male

DRUGS (15)
  1. HUMIRA 40 MG/0.8 ML PEN [Suspect]
     Indication: CROHN^S DISEASE
     Dates: start: 20111026
  2. COUMADIN [Concomitant]
     Indication: PROPHYLAXIS
     Dosage: DAILY
  3. DIGIXON [Concomitant]
     Indication: PROPHYLAXIS
     Dosage: DAILY
  4. CARVEDILOL [Concomitant]
     Indication: CARDIAC FAILURE CONGESTIVE
  5. FUROSEMIDE [Concomitant]
     Indication: PROPHYLAXIS
     Dosage: DAILY
  6. LISINOPRIL [Concomitant]
     Indication: BLOOD PRESSURE
     Dosage: AT BEDTIME
  7. SPRIRONOLACTONE [Concomitant]
     Indication: PROPHYLAXIS
     Dosage: DAILY
  8. SIMVASTATIN [Concomitant]
     Indication: BLOOD CHOLESTEROL INCREASED
     Dosage: AT BEDTIME
  9. METFORMIN [Concomitant]
     Indication: DIABETES MELLITUS
  10. GLIPIZIDE [Concomitant]
     Indication: DIABETES MELLITUS
  11. BALSALAZIDE [Concomitant]
     Indication: CROHN^S DISEASE
  12. MULTIVITAMIN [Concomitant]
     Indication: VITAMIN SUPPLEMENTATION
  13. XALATAN [Concomitant]
     Indication: GLAUCOMA
     Dosage: EYE DROPS ONE IN EACH EYE
  14. FISH OIL [Concomitant]
     Indication: SUPPLEMENTATION THERAPY
     Dosage: DAILY
  15. GABAPENTIN [Concomitant]
     Indication: NEUROPATHY PERIPHERAL

REACTIONS (2)
  - Injection site bruising [Recovered/Resolved]
  - Injection site bruising [Recovering/Resolving]
